FAERS Safety Report 11096715 (Version 2)
Quarter: 2015Q3

REPORT INFORMATION
  Report Type: Spontaneous
  Country: DE (occurrence: DE)
  Receive Date: 20150507
  Receipt Date: 20150731
  Transmission Date: 20151125
  Serious: Yes (Hospitalization)
  Sender: FDA-Public Use
  Company Number: DE-TEVA-552594USA

PATIENT
  Age: 73 Year
  Sex: Male

DRUGS (4)
  1. LEVACT [Suspect]
     Active Substance: BENDAMUSTINE HYDROCHLORIDE
     Dosage: UNK, UNKNOWN FREQ.
     Route: 042
     Dates: start: 201501
  2. MABTHERA [Suspect]
     Active Substance: RITUXIMAB
     Indication: CHRONIC LYMPHOCYTIC LEUKAEMIA
     Route: 042
     Dates: start: 20150310, end: 20150310
  3. MABTHERA [Suspect]
     Active Substance: RITUXIMAB
     Dosage: UNK UNK, UNKNOWN FREQ.
     Route: 042
     Dates: start: 201501
  4. LEVACT [Suspect]
     Active Substance: BENDAMUSTINE HYDROCHLORIDE
     Indication: CHRONIC LYMPHOCYTIC LEUKAEMIA
     Route: 042
     Dates: start: 20150310, end: 20150310

REACTIONS (5)
  - Pyrexia [Recovered/Resolved]
  - Cardiac failure [Recovered/Resolved]
  - Pulmonary congestion [Unknown]
  - Febrile infection [Recovered/Resolved]
  - Immunoglobulins decreased [Unknown]

NARRATIVE: CASE EVENT DATE: 20150310
